FAERS Safety Report 10715929 (Version 1)
Quarter: 2015Q1

REPORT INFORMATION
  Report Type: Spontaneous
  Country: US (occurrence: None)
  Receive Date: 20150109
  Receipt Date: 20150109
  Transmission Date: 20150721
  Serious: Yes (Hospitalization)
  Sender: FDA-Public Use
  Company Number: 2014PROUSA03627

PATIENT
  Age: 72 Year
  Sex: Male
  Weight: 88.4 kg

DRUGS (4)
  1. PROVENGE [Suspect]
     Active Substance: SIPULEUCEL-T
     Indication: PROSTATE CANCER METASTATIC
     Route: 042
     Dates: start: 20140306, end: 20140306
  2. FIRMAGON [Concomitant]
     Active Substance: DEGARELIX ACETATE
  3. ACETAMINOPHEN(ACETAMINOPHEN) [Concomitant]
  4. BENADRYL(DIPHENHYDRAMINE HYDROCHLORIDE) [Concomitant]

REACTIONS (8)
  - Malaise [None]
  - Haemoglobin decreased [None]
  - Migraine [None]
  - Body temperature increased [None]
  - Infusion related reaction [None]
  - Chills [None]
  - Vomiting [None]
  - Nausea [None]

NARRATIVE: CASE EVENT DATE: 20140403
